FAERS Safety Report 19401998 (Version 1)
Quarter: 2021Q2

REPORT INFORMATION
  Report Type: Report from Study
  Country: CA (occurrence: CA)
  Receive Date: 20210610
  Receipt Date: 20210610
  Transmission Date: 20210717
  Serious: Yes (Other)
  Sender: FDA-Public Use
  Company Number: CA-TEVA-2021-CA-1920782

PATIENT
  Age: 38 Year
  Sex: Female

DRUGS (3)
  1. BOTOX [Suspect]
     Active Substance: ONABOTULINUMTOXINA
     Route: 065
     Dates: start: 20210127
  2. BOTOX [Suspect]
     Active Substance: ONABOTULINUMTOXINA
     Route: 065
  3. AJOVY [Suspect]
     Active Substance: FREMANEZUMAB-VFRM
     Indication: MIGRAINE PROPHYLAXIS
     Route: 058
     Dates: start: 20210512

REACTIONS (6)
  - Contusion [Unknown]
  - Drug ineffective [Unknown]
  - Fatigue [Unknown]
  - Erythema [Unknown]
  - Chills [Unknown]
  - Lip haemorrhage [Unknown]

NARRATIVE: CASE EVENT DATE: 20210512
